FAERS Safety Report 16439718 (Version 1)
Quarter: 2019Q3

REPORT INFORMATION
  Report Type: Spontaneous
  Country: US (occurrence: US)
  Receive Date: 20190617
  Receipt Date: 20190617
  Transmission Date: 20191004
  Serious: Yes (Disabling)
  Sender: FDA-Public Use
  Company Number: None

PATIENT
  Age: 61 Year
  Sex: Male
  Weight: 72 kg

DRUGS (1)
  1. ELIQUIS [Suspect]
     Active Substance: APIXABAN
     Indication: DEEP VEIN THROMBOSIS
     Dosage: ?          QUANTITY:1 TABLET(S);?
     Route: 048
     Dates: start: 20190118

REACTIONS (8)
  - Musculoskeletal stiffness [None]
  - Muscle spasms [None]
  - Myalgia [None]
  - Muscular weakness [None]
  - Gait disturbance [None]
  - Arthralgia [None]
  - Deep vein thrombosis [None]
  - Dysstasia [None]

NARRATIVE: CASE EVENT DATE: 20190401
